FAERS Safety Report 16039514 (Version 11)
Quarter: 2019Q4

REPORT INFORMATION
  Report Type: Report from Study
  Country: US (occurrence: US)
  Receive Date: 20190306
  Receipt Date: 20191226
  Transmission Date: 20200122
  Serious: Yes (Other)
  Sender: FDA-Public Use
  Company Number: US-TESARO-2019-TSO00122-US

PATIENT
  Age: 73 Year
  Sex: Female
  Weight: 58 kg

DRUGS (6)
  1. NIRAPARIB [Suspect]
     Active Substance: NIRAPARIB
     Dosage: 100 MG, PM
     Dates: start: 20190819
  2. KYTRIL [Concomitant]
     Active Substance: GRANISETRON HYDROCHLORIDE
     Indication: PRODUCT USED FOR UNKNOWN INDICATION
     Dosage: UNK
  3. NIRAPARIB [Suspect]
     Active Substance: NIRAPARIB
     Indication: OVARIAN CANCER
     Dosage: 100 MG, DAILY HS SOMETIMES WITH AND WITHOUT FOOD
     Route: 048
     Dates: start: 20190104, end: 20190719
  4. NIRAPARIB [Suspect]
     Active Substance: NIRAPARIB
     Dosage: 200 MG, QD PM WITHOUT FOOD
     Dates: start: 20190720, end: 20190812
  5. NIRAPARIB [Suspect]
     Active Substance: NIRAPARIB
     Dosage: 100MG PM ALTERNATING WITH 200MG AM/PM
     Dates: start: 20190813, end: 20190818
  6. NIRAPARIB [Suspect]
     Active Substance: NIRAPARIB
     Dosage: 100 MG, PM

REACTIONS (40)
  - Erythema [Recovered/Resolved]
  - Vomiting projectile [Recovered/Resolved]
  - Rash [Recovered/Resolved]
  - Dizziness [Recovering/Resolving]
  - Vomiting [Recovered/Resolved]
  - Constipation [Recovering/Resolving]
  - Carbohydrate antigen 125 increased [Not Recovered/Not Resolved]
  - Headache [Recovered/Resolved]
  - Arthropathy [Recovered/Resolved]
  - Neuropathy peripheral [Not Recovered/Not Resolved]
  - Irritability [Not Recovered/Not Resolved]
  - Muscle spasms [Recovered/Resolved]
  - Dysgeusia [Unknown]
  - Dizziness postural [Unknown]
  - Product dose omission [Unknown]
  - Musculoskeletal stiffness [Not Recovered/Not Resolved]
  - Muscle rigidity [Unknown]
  - Neck pain [Not Recovered/Not Resolved]
  - Asthenia [Not Recovered/Not Resolved]
  - Emotional distress [Unknown]
  - Sleep disorder [Not Recovered/Not Resolved]
  - Dry skin [Recovered/Resolved]
  - Laboratory test abnormal [Unknown]
  - Blood creatinine increased [Recovered/Resolved]
  - Retching [Recovered/Resolved]
  - Dyspnoea exertional [Recovered/Resolved]
  - Hypertension [Recovering/Resolving]
  - Thrombosis [Unknown]
  - Onychoclasis [Recovered/Resolved]
  - Taste disorder [Recovering/Resolving]
  - Decreased appetite [Recovered/Resolved]
  - Insomnia [Not Recovered/Not Resolved]
  - Fatigue [Not Recovered/Not Resolved]
  - Underdose [Unknown]
  - Gingival bleeding [Recovered/Resolved]
  - Parosmia [Not Recovered/Not Resolved]
  - White blood cell count increased [Recovered/Resolved]
  - Weight decreased [Recovered/Resolved]
  - Oedema peripheral [Recovered/Resolved]
  - Nausea [Recovered/Resolved]

NARRATIVE: CASE EVENT DATE: 2019
